FAERS Safety Report 6490053-1 (Version None)
Quarter: 2009Q4

REPORT INFORMATION
  Report Type: 
  Country: None (occurrence: None)
  Receive Date: 20091211
  Receipt Date: 20091204
  Transmission Date: 20100525
  Serious: Yes (Hospitalization, Disabling, Other)
  Sender: FDA-Public Use
  Company Number: DE-ROCHE-672122

PATIENT
  Sex: Male
  Weight: 70 kg

DRUGS (5)
  1. RIVOTRIL [Suspect]
     Indication: DRUG USE FOR UNKNOWN INDICATION
     Dosage: PATIENT TOOK 15-20 TABLETS (STRENGH 2 MG) DAILY
     Route: 048
  2. RIVOTRIL [Suspect]
     Dosage: WAS STARTED AT THE DOSAGE OF 12 MG AND REDUCED BY 0.5 MG DAILY UNTIL COMLETE DISCONTINUED
     Route: 048
     Dates: start: 20070831, end: 20070920
  3. METHADON [Concomitant]
     Indication: DRUG THERAPY CHANGED
     Route: 048
     Dates: start: 20070831, end: 20071005
  4. ALCOHOL [Concomitant]
  5. TRUXAL [Concomitant]
     Indication: PROPHYLAXIS
     Route: 048
     Dates: start: 20070929, end: 20070930

REACTIONS (4)
  - DRUG ABUSE [None]
  - DRUG DEPENDENCE [None]
  - EPILEPSY [None]
  - SKULL FRACTURED BASE [None]
